FAERS Safety Report 5080118-3 (Version None)
Quarter: 2006Q3

REPORT INFORMATION
  Report Type: 
  Country: None (occurrence: None)
  Receive Date: 20060810
  Receipt Date: 20060727
  Transmission Date: 20061208
  Serious: Yes (Hospitalization)
  Sender: FDA-Public Use
  Company Number: 2006PV018335

PATIENT
  Age: 77 Year
  Sex: Male
  Weight: 96.1626 kg

DRUGS (9)
  1. BYETTA [Suspect]
     Indication: DIABETES MELLITUS NON-INSULIN-DEPENDENT
     Dosage: 5 MCG; BID; SC
     Route: 058
     Dates: start: 20060613, end: 20060701
  2. BYETTA [Suspect]
     Dosage: 10 MCG; BID; SC
     Route: 058
     Dates: start: 20060701
  3. VERAPAMIL [Concomitant]
  4. CELEBREX [Concomitant]
  5. AVADART [Concomitant]
  6. FLOMAX [Concomitant]
  7. AVAPRO [Concomitant]
  8. GLIPIZIDE [Concomitant]
  9. KCITRATE [Concomitant]

REACTIONS (8)
  - BENIGN PROSTATIC HYPERPLASIA [None]
  - CHILLS [None]
  - ESCHERICHIA SEPSIS [None]
  - FALL [None]
  - FEELING ABNORMAL [None]
  - HAEMORRHAGE URINARY TRACT [None]
  - HYPOTENSION [None]
  - NEPHROLITHIASIS [None]
